FAERS Safety Report 9708544 (Version 1)
Quarter: 2013Q4

REPORT INFORMATION
  Report Type: Spontaneous
  Country: GB (occurrence: GB)
  Receive Date: 20131125
  Receipt Date: 20131125
  Transmission Date: 20140711
  Serious: Yes (Life-Threatening, Hospitalization)
  Sender: FDA-Public Use
  Company Number: GB-TEVA-445729ISR

PATIENT
  Sex: Male

DRUGS (15)
  1. VINCRISTINE [Suspect]
     Indication: LUNG NEOPLASM MALIGNANT
     Dates: start: 201310
  2. DOXORUBICIN [Suspect]
     Indication: LUNG NEOPLASM MALIGNANT
     Dates: start: 201310
  3. CYCLOPHOSPHAMIDE [Suspect]
     Indication: LUNG NEOPLASM MALIGNANT
     Dates: start: 201310
  4. PHENYTOIN [Concomitant]
  5. PHENOBARBITAL [Concomitant]
  6. SENNA [Concomitant]
  7. BISACODYL [Concomitant]
  8. ATORVASTATIN [Concomitant]
  9. OXYCONTIN [Concomitant]
  10. SOTALOL [Concomitant]
  11. ASPIRIN [Concomitant]
  12. ESOMEPRAZOLE [Concomitant]
  13. PREDNISOLONE [Concomitant]
  14. ALENDRONATE [Concomitant]
  15. CALCICHEW D3 [Concomitant]

REACTIONS (1)
  - Neutropenic sepsis [Not Recovered/Not Resolved]
